FAERS Safety Report 9547248 (Version 1)
Quarter: 2013Q2

REPORT INFORMATION
  Report Type: Spontaneous
  Country: US (occurrence: None)
  Receive Date: 20130524
  Receipt Date: 20130524
  Transmission Date: 20140414
  Serious: No
  Sender: FDA-Public Use
  Company Number: PHEH2012US024124

PATIENT
  Age: 49 Year
  Sex: Female
  Weight: 65.8 kg

DRUGS (5)
  1. GILENYA [Suspect]
     Dates: start: 20121205
  2. VALIUM (DIAZEPAM) [Concomitant]
  3. OXYCODONE [Concomitant]
  4. ARMOUR THYROID [Concomitant]
  5. ZOLOFT (SERTRALINE HYDROCHLORIDE) [Concomitant]

REACTIONS (11)
  - Fall [None]
  - Muscle spasticity [None]
  - Abdominal pain upper [None]
  - Fatigue [None]
  - Nausea [None]
  - Palpitations [None]
  - Hypoaesthesia [None]
  - Headache [None]
  - Dizziness [None]
  - Eye pain [None]
  - Paraesthesia [None]
